FAERS Safety Report 6394129-9 (Version None)
Quarter: 2009Q4

REPORT INFORMATION
  Report Type: 
  Country: None (occurrence: None)
  Receive Date: 20091008
  Receipt Date: 20090928
  Transmission Date: 20100525
  Serious: Yes (Hospitalization)
  Sender: FDA-Public Use
  Company Number: GB-PFIZER INC-2009254222

PATIENT
  Age: 34 Year

DRUGS (1)
  1. CHAMPIX [Suspect]
     Indication: SMOKING CESSATION THERAPY
     Dosage: UNK
     Dates: start: 20080512, end: 20080531

REACTIONS (8)
  - ABDOMINAL PAIN [None]
  - BACK PAIN [None]
  - CONSTIPATION [None]
  - FOOT OPERATION [None]
  - MOOD SWINGS [None]
  - MOTION SICKNESS [None]
  - PAIN IN EXTREMITY [None]
  - VOMITING IN PREGNANCY [None]
